FAERS Safety Report 8983944 (Version 2)
Quarter: 2013Q1

REPORT INFORMATION
  Report Type: Spontaneous
  Country: US (occurrence: None)
  Receive Date: 20121212
  Receipt Date: 20121217
  Transmission Date: 20140127
  Serious: Yes (Hospitalization)
  Sender: FDA-Public Use
  Company Number: DKLU1086829

PATIENT
  Age: 69 Year
  Sex: Male

DRUGS (1)
  1. SABRIL [Suspect]
     Indication: COMPLEX PARTIAL SEIZURES
     Dosage: 2 IN 1 D
     Route: 048

REACTIONS (1)
  - Pneumonia [None]
